FAERS Safety Report 7717946-9 (Version None)
Quarter: 2011Q3

REPORT INFORMATION
  Report Type: 
  Country: None (occurrence: None)
  Receive Date: 20110830
  Receipt Date: 20110824
  Transmission Date: 20111222
  Serious: Yes (Death, Other)
  Sender: FDA-Public Use
  Company Number: JP-JNJFOC-20091206326

PATIENT
  Sex: Female
  Weight: 49 kg

DRUGS (18)
  1. KYTRIL [Concomitant]
     Route: 042
     Dates: start: 20091224, end: 20091224
  2. KYTRIL [Concomitant]
     Indication: PROPHYLAXIS
     Route: 042
     Dates: start: 20090915, end: 20090915
  3. KYTRIL [Concomitant]
     Route: 042
     Dates: start: 20091118, end: 20091118
  4. DECADRON [Concomitant]
     Indication: PROPHYLAXIS
     Route: 048
     Dates: start: 20091224, end: 20091224
  5. DECADRON [Concomitant]
     Route: 048
     Dates: start: 20090916, end: 20090920
  6. DECADRON [Concomitant]
     Route: 042
     Dates: start: 20090915, end: 20090915
  7. TOPOTECAN [Concomitant]
     Route: 042
     Dates: start: 20091224, end: 20091224
  8. DOXORUBICIN HCL [Suspect]
     Indication: OVARIAN CANCER RECURRENT
     Dosage: CYCLE 1
     Route: 042
     Dates: start: 20090805, end: 20090805
  9. DECADRON [Concomitant]
     Route: 042
     Dates: start: 20090805, end: 20090805
  10. DECADRON [Concomitant]
     Route: 048
     Dates: start: 20091118, end: 20091118
  11. DECADRON [Concomitant]
     Route: 048
     Dates: start: 20091014, end: 20091014
  12. DECADRON [Concomitant]
     Route: 048
     Dates: start: 20090806, end: 20090810
  13. DECADRON [Concomitant]
     Route: 042
     Dates: start: 20091014, end: 20091014
  14. TOPOTECAN [Concomitant]
     Route: 042
     Dates: start: 20091118, end: 20091118
  15. DOXORUBICIN HCL [Suspect]
     Dosage: CYCLE 2
     Route: 042
     Dates: start: 20090915, end: 20090915
  16. DECADRON [Concomitant]
     Route: 048
     Dates: start: 20091015, end: 20091015
  17. KYTRIL [Concomitant]
     Route: 042
     Dates: start: 20090805, end: 20090805
  18. DOXORUBICIN HCL [Suspect]
     Dosage: CYCLE 3
     Route: 042
     Dates: start: 20091014, end: 20091014

REACTIONS (5)
  - MALAISE [None]
  - OVARIAN CANCER RECURRENT [None]
  - WHITE BLOOD CELL COUNT DECREASED [None]
  - PYREXIA [None]
  - HEADACHE [None]
